FAERS Safety Report 22212196 (Version 3)
Quarter: 2023Q2

REPORT INFORMATION
  Report Type: Report from Study
  Country: TR (occurrence: TR)
  Receive Date: 20230414
  Receipt Date: 20230510
  Transmission Date: 20230721
  Serious: Yes (Hospitalization, Other)
  Sender: FDA-Public Use
  Company Number: TR-ABBVIE-4716409

PATIENT
  Age: 71 Year
  Sex: Male

DRUGS (2)
  1. CARBIDOPA\LEVODOPA [Suspect]
     Active Substance: CARBIDOPA\LEVODOPA
     Indication: Parkinson^s disease
     Dosage: MORNING DOSE (ML): 8.40 CONTINUOUS DOSE (ML): 4.80 EXTRA DOSE (ML): 1.00
     Route: 050
     Dates: start: 20220126, end: 20230331
  2. CARBIDOPA\LEVODOPA [Suspect]
     Active Substance: CARBIDOPA\LEVODOPA
     Dosage: MORNING DOSE (ML): 8.40 CONTINUOUS DOSE (ML): 5.40 EXTRA DOSE (ML): 1.00
     Route: 050
     Dates: start: 20230331

REACTIONS (4)
  - Peripheral sensorimotor neuropathy [Not Recovered/Not Resolved]
  - Bradykinesia [Recovering/Resolving]
  - Diabetes mellitus [Not Recovered/Not Resolved]
  - Unintentional medical device removal [Unknown]

NARRATIVE: CASE EVENT DATE: 20230320
